FAERS Safety Report 4284014-0 (Version None)
Quarter: 2004Q1

REPORT INFORMATION
  Report Type: 
  Country: None (occurrence: None)
  Receive Date: 20040202
  Receipt Date: 20040115
  Transmission Date: 20041129
  Serious: Yes (Death)
  Sender: FDA-Public Use
  Company Number: CHPA2004US00475

PATIENT
  Age: 26 Year
  Sex: Male

DRUGS (1)
  1. THERAFLU-UNKNOWN FORMULA (NCH) (UNKNOWN) UNKNOWN [Suspect]
     Dosage: UNK, UNK, UNK
     Route: 065
     Dates: start: 20040111

REACTIONS (1)
  - MYOCARDIAL INFARCTION [None]
